FAERS Safety Report 15188224 (Version 3)
Quarter: 2018Q3

REPORT INFORMATION
  Report Type: Spontaneous
  Country: IT (occurrence: IT)
  Receive Date: 20180724
  Receipt Date: 20180915
  Transmission Date: 20181010
  Serious: Yes (Death, Hospitalization, Congenital Anomaly, Other)
  Sender: FDA-Public Use
  Company Number: IT-AUROBINDO-AUR-APL-2018-036127

PATIENT
  Age: 43 Year
  Sex: Female

DRUGS (2)
  1. POTASSIUM [Concomitant]
     Active Substance: POTASSIUM
     Indication: PRODUCT USED FOR UNKNOWN INDICATION
     Dosage: UNK
     Route: 065
  2. OLANZAPINE. [Suspect]
     Active Substance: OLANZAPINE
     Indication: PSYCHOTIC DISORDER
     Dosage: UNK
     Route: 065

REACTIONS (22)
  - Pyrexia [Unknown]
  - Atrial fibrillation [Unknown]
  - Psychotic disorder [Fatal]
  - Bradycardia [Unknown]
  - Muscle disorder [Unknown]
  - Mood disorder due to a general medical condition [Not Recovered/Not Resolved]
  - Loss of consciousness [Unknown]
  - Ventricular fibrillation [Unknown]
  - Condition aggravated [Fatal]
  - Gait disturbance [Unknown]
  - Dystonia [Unknown]
  - Bacterial infection [Unknown]
  - Areflexia [Unknown]
  - Procalcitonin increased [Unknown]
  - Arrhythmia [Unknown]
  - Oculogyric crisis [Unknown]
  - Dyskinesia [Unknown]
  - Pancytopenia [Unknown]
  - Hypokinesia [Unknown]
  - Eyelid ptosis [Unknown]
  - Decubitus ulcer [Unknown]
  - Inborn error of metabolism [Not Recovered/Not Resolved]
